FAERS Safety Report 24343317 (Version 1)
Quarter: 2024Q3

REPORT INFORMATION
  Report Type: Report from Study
  Country: CA (occurrence: CA)
  Receive Date: 20240920
  Receipt Date: 20240920
  Transmission Date: 20241017
  Serious: Yes (Death, Other)
  Sender: NOVARTIS
  Company Number: CA-SANDOZ-SDZ2024CA081362

PATIENT
  Age: 59 Year
  Sex: Female

DRUGS (1)
  1. EVEROLIMUS [Suspect]
     Active Substance: EVEROLIMUS
     Indication: Product used for unknown indication
     Dosage: 5 MG, QD,  2 DOSE EVERY N/A N/A
     Route: 065
     Dates: start: 20240401, end: 202408

REACTIONS (1)
  - Death [Fatal]
